FAERS Safety Report 7207773-3 (Version None)
Quarter: 2011Q1

REPORT INFORMATION
  Report Type: 
  Country: None (occurrence: None)
  Receive Date: 20110103
  Receipt Date: 20101220
  Transmission Date: 20110831
  Serious: Yes (Hospitalization)
  Sender: FDA-Public Use
  Company Number: TR-MYLANLABS-2010S1023552

PATIENT
  Age: 33 Year
  Sex: Female

DRUGS (2)
  1. DOXYCYCLINE [Suspect]
     Indication: VAGINAL INFECTION
     Route: 065
  2. ORNIDAZOLE [Suspect]
     Indication: VAGINAL INFECTION
     Route: 065

REACTIONS (1)
  - PANCREATITIS ACUTE [None]
